FAERS Safety Report 10470883 (Version 1)
Quarter: 2014Q3

REPORT INFORMATION
  Report Type: Spontaneous
  Country: US (occurrence: None)
  Receive Date: 20140917
  Receipt Date: 20140917
  Transmission Date: 20150326
  Serious: No
  Sender: FDA-Public Use
  Company Number: 2014CT000093

PATIENT
  Age: 55 Year
  Sex: Female

DRUGS (9)
  1. STOOL SOFTENER [Concomitant]
     Active Substance: DOCUSATE CALCIUM
  2. METOPROLOLOL [Concomitant]
  3. VITAMIN D [Concomitant]
     Active Substance: CHOLECALCIFEROL
  4. LOPERAMIDE [Concomitant]
     Active Substance: LOPERAMIDE
  5. KORLYM [Suspect]
     Active Substance: MIFEPRISTONE
     Indication: PITUITARY-DEPENDENT CUSHING^S SYNDROME
     Dates: start: 20140617
  6. ROBAXIN [Concomitant]
     Active Substance: METHOCARBAMOL
  7. MELOXICAM. [Concomitant]
     Active Substance: MELOXICAM
  8. GABAPENTIN. [Concomitant]
     Active Substance: GABAPENTIN
  9. HYDROCODONE/APAP [Concomitant]
     Active Substance: ACETAMINOPHEN\HYDROCODONE

REACTIONS (5)
  - Nausea [None]
  - Hyperhidrosis [None]
  - Blood pressure increased [None]
  - Oedema peripheral [None]
  - Dizziness [None]

NARRATIVE: CASE EVENT DATE: 201406
